FAERS Safety Report 9173281 (Version 1)
Quarter: 2013Q1

REPORT INFORMATION
  Report Type: Spontaneous
  Country: US (occurrence: US)
  Receive Date: 20130320
  Receipt Date: 20130320
  Transmission Date: 20140127
  Serious: Yes (Hospitalization, Other)
  Sender: FDA-Public Use
  Company Number: US-BAYER-2013-033119

PATIENT
  Sex: Female

DRUGS (6)
  1. BETASERON [Suspect]
     Indication: RELAPSING-REMITTING MULTIPLE SCLEROSIS
     Dosage: 0.25 MG, QOD
     Route: 058
  2. IBUPROFEN [IBUPROFEN] [Concomitant]
     Dosage: 200 MG
  3. XANAX [Concomitant]
     Dosage: 0.25 MG
  4. TYLENOL PM [DIPHENHYDRAMINE,PARACETAMOL] [Concomitant]
     Dosage: 25 - 500 MG
  5. MELATONIN [Concomitant]
     Dosage: 1 MG
  6. SUDAFED [PSEUDOEPHEDRINE HYDROCHLORIDE] [Concomitant]
     Dosage: 30 MG

REACTIONS (7)
  - Rash generalised [Unknown]
  - Malignant melanoma [Unknown]
  - Basal cell carcinoma [Unknown]
  - Multiple sclerosis [Unknown]
  - Influenza like illness [Unknown]
  - Insomnia [Unknown]
  - Injection site reaction [Not Recovered/Not Resolved]
